FAERS Safety Report 9303122 (Version 2)
Quarter: 2013Q2

REPORT INFORMATION
  Report Type: Spontaneous
  Country: AU (occurrence: AU)
  Receive Date: 20130522
  Receipt Date: 20130604
  Transmission Date: 20140414
  Serious: Yes (Death)
  Sender: FDA-Public Use
  Company Number: PHHY2013AU051019

PATIENT
  Age: 83 Year
  Sex: Female

DRUGS (2)
  1. AFINITOR [Suspect]
     Indication: BREAST CANCER METASTATIC
     Dosage: 10 MG
     Route: 048
     Dates: start: 20130419, end: 20130516
  2. DEXAMETHASONE [Concomitant]
     Indication: INTESTINAL OBSTRUCTION
     Dosage: 4 MG
     Route: 048
     Dates: start: 20130401, end: 20130516

REACTIONS (1)
  - Death [Fatal]
